FAERS Safety Report 14149276 (Version 2)
Quarter: 2017Q4

REPORT INFORMATION
  Report Type: Spontaneous
  Country: US (occurrence: US)
  Receive Date: 20171101
  Receipt Date: 20171207
  Transmission Date: 20180321
  Serious: Yes (Other)
  Sender: FDA-Public Use
  Company Number: US-JNJFOC-20171031456

PATIENT
  Age: 51 Year
  Sex: Female
  Weight: 63.05 kg

DRUGS (4)
  1. FENTANYL. [Suspect]
     Active Substance: FENTANYL
     Indication: PAIN
     Route: 062
     Dates: start: 2016
  2. PROTONIX [Concomitant]
     Active Substance: PANTOPRAZOLE SODIUM
     Indication: GASTROOESOPHAGEAL REFLUX DISEASE
     Route: 065
     Dates: start: 2007
  3. PREDNISONE. [Concomitant]
     Active Substance: PREDNISONE
     Indication: SCLERODERMA
     Route: 048
     Dates: start: 199207
  4. PLAQUENIL [Concomitant]
     Active Substance: HYDROXYCHLOROQUINE SULFATE
     Indication: SCLERODERMA
     Route: 048
     Dates: start: 199712

REACTIONS (3)
  - Breakthrough pain [Not Recovered/Not Resolved]
  - Fibula fracture [Unknown]
  - Fall [Recovered/Resolved]

NARRATIVE: CASE EVENT DATE: 201606
